FAERS Safety Report 8592079-0 (Version None)
Quarter: 2012Q3

REPORT INFORMATION
  Report Type: 
  Country: None (occurrence: None)
  Receive Date: 20120814
  Receipt Date: 20120807
  Transmission Date: 20120928
  Serious: Yes (Hospitalization)
  Sender: FDA-Public Use
  Company Number: DE-UCBSA-049965

PATIENT
  Sex: Female
  Weight: 75 kg

DRUGS (32)
  1. ARAVA [Concomitant]
     Indication: RHEUMATOID ARTHRITIS
     Dosage: FREQUENCY 1
     Route: 048
     Dates: start: 20091201, end: 20120101
  2. PREDNISOLONE [Concomitant]
     Dates: start: 20090514, end: 20110201
  3. LORAZEPAM [Concomitant]
     Dosage: 0.5MG TIS
     Dates: start: 20110701
  4. PREDNISOLONE [Concomitant]
     Dates: start: 20110215, end: 20110215
  5. IRBESARTAN [Concomitant]
     Indication: HYPERTENSION
     Dosage: FREQUENCY 2
     Route: 048
     Dates: start: 20090101
  6. IRBESARTAN [Concomitant]
     Dates: start: 20110225
  7. IRBESARTAN [Concomitant]
     Indication: HYPERTENSION
     Dosage: FREQUENCY-1
     Route: 048
     Dates: start: 20110226
  8. LORAZEPAM [Concomitant]
     Indication: SLEEP DISORDER
     Dates: start: 20110301, end: 20110101
  9. PNEUMOCOCCAL VACCINE [Concomitant]
     Dates: start: 20110223, end: 20110223
  10. PREDNISOLONE [Concomitant]
     Dates: start: 20110226, end: 20110314
  11. PREDNISOLONE [Concomitant]
     Dates: start: 20110517
  12. AMLODIPINE [Concomitant]
     Dates: start: 20110228, end: 20110101
  13. AMLODIPINE [Concomitant]
     Dosage: 5 MG: BIM
     Route: 048
     Dates: start: 20110101
  14. ERGOCALCIFEROL [Concomitant]
     Indication: OSTEOPOROSIS
     Route: 048
     Dates: start: 20110224
  15. ARAVA [Concomitant]
     Dates: start: 20091201, end: 20111026
  16. PREDNISOLONE [Concomitant]
     Dates: start: 20110328, end: 20110404
  17. PANTOPRAZOLE [Concomitant]
     Indication: PROPHYLAXIS
     Dates: start: 20110216, end: 20110228
  18. DICLOFENAC [Concomitant]
     Dates: start: 20110401
  19. ARAVA [Concomitant]
     Dosage: FREQUENCY 1
     Route: 048
     Dates: start: 20120120
  20. PREDNISOLONE [Concomitant]
     Dates: start: 20110216, end: 20110218
  21. AMLODIPINE [Concomitant]
     Indication: HYPERTENSION
     Dates: start: 20110226, end: 20110227
  22. CALCIUM CARBONATE [Concomitant]
     Indication: OSTEOPOROSIS
     Dosage: FREQUENCY 2
     Route: 048
     Dates: start: 20090101
  23. PREDNISOLONE [Concomitant]
     Dates: start: 20110219, end: 20110225
  24. PREDNISOLONE [Concomitant]
     Dates: start: 20110315, end: 20110327
  25. PREDNISOLONE [Concomitant]
     Dates: start: 20110405, end: 20110417
  26. MAGNESIUM [Concomitant]
     Indication: MUSCLE SPASMS
     Dates: start: 20110222
  27. PREDNISOLONE [Concomitant]
     Indication: RHEUMATOID ARTHRITIS
     Route: 048
     Dates: start: 20070101
  28. DICLOFENAC [Concomitant]
     Indication: PAIN
     Dosage: 75 MG EVERY DAY AFTERNOON
     Dates: start: 20110215, end: 20110225
  29. CERTOLIZUMAB PEGOL [Suspect]
     Indication: RHEUMATOID ARTHRITIS
     Dosage: NO OF DOSES RECEIVED-24
     Route: 058
     Dates: start: 20110224, end: 20120112
  30. ARAVA [Concomitant]
     Dates: start: 20111026
  31. PREDNISOLONE [Concomitant]
     Dates: start: 20110418, end: 20110516
  32. IRBESARTAN [Concomitant]
     Dates: start: 20110216, end: 20110224

REACTIONS (3)
  - SYSTEMIC LUPUS ERYTHEMATOSUS [None]
  - FUNGAL SKIN INFECTION [None]
  - PSORIASIS [None]
